FAERS Safety Report 6799690-8 (Version None)
Quarter: 2010Q2

REPORT INFORMATION
  Report Type: 
  Country: None (occurrence: None)
  Receive Date: 20100624
  Receipt Date: 20100409
  Transmission Date: 20101027
  Serious: Yes (Hospitalization, Other)
  Sender: FDA-Public Use
  Company Number: 003036

PATIENT
  Sex: Male
  Weight: 3.5 kg

DRUGS (2)
  1. KEPPRA [Suspect]
     Indication: SIMPLE PARTIAL SEIZURES
     Dosage: (2000 MG QD TRANSPLACENTAL)
     Route: 064
     Dates: start: 20090118, end: 20090701
  2. ZONEGRAN [Concomitant]

REACTIONS (4)
  - JAUNDICE NEONATAL [None]
  - LUNG DISORDER [None]
  - MATERNAL DRUGS AFFECTING FOETUS [None]
  - PREMATURE BABY [None]
